FAERS Safety Report 4597004-5 (Version None)
Quarter: 2005Q1

REPORT INFORMATION
  Report Type: 
  Country: None (occurrence: None)
  Receive Date: 20050228
  Receipt Date: 20050215
  Transmission Date: 20050727
  Serious: Yes (Other)
  Sender: FDA-Public Use
  Company Number: 2005031792

PATIENT
  Sex: Male

DRUGS (1)
  1. ZOLOFT [Suspect]
     Indication: PAIN
     Dosage: 10 MG (10 MG, 1 IN 1 D), ORAL
     Route: 048

REACTIONS (8)
  - ABNORMAL BEHAVIOUR [None]
  - ASTHENIA [None]
  - CARDIAC VALVE DISEASE [None]
  - FEELING ABNORMAL [None]
  - HYPERTENSION [None]
  - JOINT INJURY [None]
  - VENTRICULAR TACHYCARDIA [None]
  - VICTIM OF CRIME [None]
